FAERS Safety Report 15494060 (Version 1)
Quarter: 2018Q4

REPORT INFORMATION
  Report Type: Spontaneous
  Country: US (occurrence: US)
  Receive Date: 20181005
  Receipt Date: 20181005
  Transmission Date: 20190205
  Serious: Yes (Other)
  Sender: FDA-Public Use
  Company Number: None

PATIENT
  Age: 70 Year
  Sex: Male
  Weight: 72.9 kg

DRUGS (11)
  1. ATORVASTATIN [Concomitant]
     Active Substance: ATORVASTATIN
  2. TEMOZOLOMIDE. [Suspect]
     Active Substance: TEMOZOLOMIDE
     Indication: CARCINOID TUMOUR OF THE PANCREAS
     Route: 048
     Dates: start: 20121017
  3. VENTOLIN [Concomitant]
     Active Substance: ALBUTEROL SULFATE
  4. CAPECITABINE. [Suspect]
     Active Substance: CAPECITABINE
     Indication: ENDOCRINE PANCREATIC DISORDER
     Route: 048
     Dates: start: 20121017
  5. PROCHLORPERAZINE. [Concomitant]
     Active Substance: PROCHLORPERAZINE
  6. NOVOLOG [Concomitant]
     Active Substance: INSULIN ASPART
  7. CAPECITABINE. [Suspect]
     Active Substance: CAPECITABINE
     Indication: CARCINOID TUMOUR
     Route: 048
     Dates: start: 20121017
  8. OCTREOTIDE. [Concomitant]
     Active Substance: OCTREOTIDE
  9. GLIPIZIDE. [Concomitant]
     Active Substance: GLIPIZIDE
  10. METFORMIN [Concomitant]
     Active Substance: METFORMIN HYDROCHLORIDE
  11. TEMOVATE [Concomitant]
     Active Substance: CLOBETASOL PROPIONATE

REACTIONS (1)
  - Disease progression [None]
